FAERS Safety Report 8848748 (Version 1)
Quarter: 2012Q4

REPORT INFORMATION
  Report Type: Spontaneous
  Country: IE (occurrence: None)
  Receive Date: 20121016
  Receipt Date: 20121016
  Transmission Date: 20130627
  Serious: Yes (Other)
  Sender: FDA-Public Use
  Company Number: FK201203040

PATIENT
  Age: 91 Year
  Sex: Male

DRUGS (1)
  1. PIPERACILLIN / TAZOBACTAM [Suspect]
     Indication: INFECTION
     Route: 042
     Dates: start: 20120912, end: 20120913

REACTIONS (5)
  - Tachycardia [None]
  - Rash erythematous [None]
  - Oxygen saturation decreased [None]
  - Rash pruritic [None]
  - Erythema [None]
